FAERS Safety Report 9651993 (Version 5)
Quarter: 2013Q4

REPORT INFORMATION
  Report Type: Spontaneous
  Country: IT (occurrence: None)
  Receive Date: 20131025
  Receipt Date: 20131213
  Transmission Date: 20140711
  Serious: Yes (Death, Hospitalization)
  Sender: FDA-Public Use
  Company Number: SYM-2013-11963

PATIENT
  Age: 63 Year
  Sex: Male

DRUGS (11)
  1. FLUOROURACIL [Suspect]
     Indication: COLORECTAL CANCER METASTATIC
     Route: 040
     Dates: start: 20130821, end: 20130821
  2. IRINOTECAN [Suspect]
     Indication: COLORECTAL CANCER METASTATIC
     Route: 041
     Dates: start: 20130821, end: 20130821
  3. AFLIBERCEPT [Suspect]
     Indication: COLORECTAL CANCER METASTATIC
     Route: 041
     Dates: start: 20130821, end: 20130821
  4. LEUCOVORIN [Suspect]
     Indication: COLORECTAL CANCER METASTATIC
     Route: 041
     Dates: start: 20130821, end: 20130821
  5. BELLADONNA ALKALOIDS (ATROPA BELLADONA EXTRACT) (ATROPA BELLADONNA EXTRACT) [Concomitant]
  6. CORTICOSTEROIDS (CORTICOSTEROIDS) [Concomitant]
  7. SEROTONIN ANTAGONIST (SEROTONIN ANTAGONIST) [Concomitant]
  8. ANTITHROMBOTIC AGENTS (ANTITHROBOTIC AGENTS) [Concomitant]
  9. LOPERAMIDE (LOPERAMIDE )(LOPERAMIDE) [Concomitant]
  10. BETA BLOCKING AGENTS (BETA BLOCKING AGENTS) [Concomitant]
  11. DIGOXIN (DIGOXIN) (DIGOXIN) [Concomitant]

REACTIONS (4)
  - Diarrhoea [None]
  - Sepsis [None]
  - Anaemia [None]
  - Platelet disorder [None]
